FAERS Safety Report 5829785-4 (Version None)
Quarter: 2008Q3

REPORT INFORMATION
  Report Type: 
  Country: None (occurrence: None)
  Receive Date: 20080722
  Receipt Date: 20070523
  Transmission Date: 20090109
  Serious: Yes (Hospitalization)
  Sender: FDA-Public Use
  Company Number: 2008BI011188

PATIENT
  Age: 48 Year
  Sex: Female

DRUGS (3)
  1. AVONEX LYOPHILIZED [Suspect]
     Indication: MULTIPLE SCLEROSIS
     Dosage: 30 UG;QW;IM
     Route: 030
     Dates: start: 19970101, end: 20050101
  2. AVONEX [Suspect]
     Indication: MULTIPLE SCLEROSIS
     Dosage: 30 UG;QW;IM
     Route: 030
     Dates: start: 20050101, end: 20050101
  3. AVONEX LYOPHILIZED [Suspect]
     Indication: MULTIPLE SCLEROSIS
     Dosage: 30 UG;QW;IM
     Route: 030
     Dates: start: 20050101, end: 20070301

REACTIONS (4)
  - INFLUENZA LIKE ILLNESS [None]
  - MUSCLE RIGIDITY [None]
  - MUSCULOSKELETAL STIFFNESS [None]
  - URINARY TRACT INFECTION [None]
